FAERS Safety Report 7478395-4 (Version None)
Quarter: 2011Q2

REPORT INFORMATION
  Report Type: 
  Country: None (occurrence: None)
  Receive Date: 20110513
  Receipt Date: 20100429
  Transmission Date: 20111010
  Serious: No
  Sender: FDA-Public Use
  Company Number: US-PFIZER INC-2010012692

PATIENT
  Age: 69 Year
  Sex: Female
  Weight: 68 kg

DRUGS (18)
  1. CALCIUM [Concomitant]
     Dosage: UNK
  2. CO-Q-10 [Concomitant]
     Dosage: UNK
  3. TOPROL-XL [Concomitant]
     Dosage: UNK
  4. AROMASIN [Concomitant]
     Dosage: UNK
  5. PREDNISONE [Concomitant]
     Dosage: UNK
  6. AZULFIDINE [Suspect]
     Dosage: UNK
  7. QUINIDINE [Concomitant]
     Dosage: UNK
  8. ACETYLSALICYLIC ACID [Concomitant]
     Dosage: UNK
  9. LEXAPRO [Concomitant]
     Dosage: UNK
  10. OMEPRAZOLE [Concomitant]
     Dosage: UNK
  11. PLAQUENIL [Concomitant]
     Dosage: UNK
  12. MAGNESIUM [Concomitant]
     Dosage: UNK
  13. SULFASALAZINE [Suspect]
     Dosage: 100 MG, 1X/DAY
  14. LISINOPRIL [Concomitant]
     Dosage: UNK
  15. IBANDRONATE SODIUM [Concomitant]
     Dosage: UNK
  16. LOVAZA [Concomitant]
     Dosage: UNK
  17. SIMVASTATIN [Concomitant]
     Dosage: UNK
  18. VITAMIN B COMPLEX CAP [Concomitant]
     Dosage: UNK

REACTIONS (3)
  - ORAL PAIN [None]
  - DRY MOUTH [None]
  - STOMATITIS [None]
